FAERS Safety Report 15451244 (Version 1)
Quarter: 2018Q4

REPORT INFORMATION
  Report Type: Spontaneous
  Country: JP (occurrence: JP)
  Receive Date: 20181001
  Receipt Date: 20181001
  Transmission Date: 20190204
  Serious: Yes (Other)
  Sender: FDA-Public Use
  Company Number: JP-TOLMAR, INC.-TOLG20180553

PATIENT
  Age: 86 Year
  Sex: Female

DRUGS (2)
  1. METRONIDAZOLE. [Suspect]
     Active Substance: METRONIDAZOLE
     Indication: INFECTIVE SPONDYLITIS
     Dosage: 1500 MG
     Route: 048
  2. METRONIDAZOLE. [Suspect]
     Active Substance: METRONIDAZOLE
     Indication: PARVIMONAS MICRA INFECTION

REACTIONS (5)
  - Dysarthria [Recovered/Resolved]
  - Paraesthesia [Recovered/Resolved]
  - Dysphagia [Recovered/Resolved]
  - Paraesthesia oral [Recovered/Resolved]
  - Toxic encephalopathy [Recovered/Resolved]
